FAERS Safety Report 7450320-1 (Version None)
Quarter: 2011Q2

REPORT INFORMATION
  Report Type: 
  Country: None (occurrence: None)
  Receive Date: 20110422
  Receipt Date: 20110421
  Transmission Date: 20111010
  Serious: Yes (Hospitalization)
  Sender: FDA-Public Use
  Company Number: SP03327

PATIENT
  Age: 60 Year
  Sex: Female

DRUGS (1)
  1. OSMOPREP [Suspect]
     Indication: COLONOSCOPY
     Dosage: (32 TABLETS SAME DAY SPLIT DOSE REGIMEN), ORAL
     Route: 048
     Dates: start: 20101123, end: 20101123

REACTIONS (7)
  - COLITIS EROSIVE [None]
  - INTESTINAL ISCHAEMIA [None]
  - RECTAL POLYP [None]
  - MESENTERIC ARTERY STENOSIS [None]
  - INTESTINAL POLYP [None]
  - ABDOMINAL PAIN [None]
  - COLITIS ISCHAEMIC [None]
